FAERS Safety Report 9157929 (Version 3)
Quarter: 2013Q2

REPORT INFORMATION
  Report Type: Report from Study
  Country: BE (occurrence: BE)
  Receive Date: 20130312
  Receipt Date: 20130429
  Transmission Date: 20140414
  Serious: Yes (Hospitalization)
  Sender: FDA-Public Use
  Company Number: BE-ROCHE-1199271

PATIENT
  Age: 49 Year
  Sex: Female

DRUGS (13)
  1. PERTUZUMAB [Suspect]
     Indication: BREAST CANCER
     Route: 042
     Dates: start: 20130204
  2. PERTUZUMAB [Suspect]
     Dosage: LAST DOSE PRIOR TO SAE: 26/FEB/2013
     Route: 042
  3. TRASTUZUMAB [Suspect]
     Indication: BREAST CANCER
     Route: 042
     Dates: start: 20130205
  4. TRASTUZUMAB [Suspect]
     Dosage: LAST DOSE PRIOR TO SAE: 26/FEB/2013 (6 MG/KG AS PER PROTOCOL)
     Route: 042
  5. TAXOL [Suspect]
     Indication: BREAST CANCER
     Dosage: LAST DOSE PRIOR TO SAE: 26/FEB/2013. DOSE INTERRUPTED DUE TO SAE.
     Route: 042
     Dates: start: 20130205, end: 20130305
  6. TAXOL [Suspect]
     Route: 042
     Dates: start: 20130312
  7. TRANSTEC [Concomitant]
     Route: 065
     Dates: start: 20121120
  8. WELLBUTRIN [Concomitant]
     Route: 065
     Dates: start: 20130118
  9. XANAX [Concomitant]
     Route: 065
     Dates: start: 20130204
  10. OMEPRAZOLE [Concomitant]
     Route: 065
     Dates: start: 20130118
  11. DEXAMETHASONE [Concomitant]
     Route: 065
     Dates: start: 20130204
  12. DICLOFENAC [Concomitant]
     Route: 065
     Dates: start: 20120901
  13. CIPRAMIL [Concomitant]
     Route: 065
     Dates: start: 20130126

REACTIONS (1)
  - Dehydration [Recovered/Resolved]
